APPROVED DRUG PRODUCT: SETLAKIN
Active Ingredient: ETHINYL ESTRADIOL; LEVONORGESTREL
Strength: 0.03MG;0.15MG
Dosage Form/Route: TABLET;ORAL
Application: A090716 | Product #001 | TE Code: AB
Applicant: NOVAST LABORATORIES LTD
Approved: Sep 15, 2014 | RLD: No | RS: No | Type: RX